FAERS Safety Report 26110830 (Version 1)
Quarter: 2025Q4

REPORT INFORMATION
  Report Type: Spontaneous
  Country: AE (occurrence: None)
  Receive Date: 20251202
  Receipt Date: 20251202
  Transmission Date: 20260117
  Serious: Yes (Life-Threatening, Hospitalization)
  Sender: HARMAN FINOCHEM
  Company Number: AE-Harman-000136

PATIENT
  Age: 17 Year
  Sex: Female

DRUGS (1)
  1. METFORMIN [Suspect]
     Active Substance: METFORMIN HYDROCHLORIDE
     Indication: Product used for unknown indication
     Dosage: INGESTED 30 TABLETS OF 500 MG
     Route: 048

REACTIONS (6)
  - Lactic acidosis [Recovering/Resolving]
  - Intentional overdose [Unknown]
  - Suicide attempt [Unknown]
  - Agitation [Recovering/Resolving]
  - Hypotension [Recovering/Resolving]
  - Off label use [Unknown]
